FAERS Safety Report 5517659-8 (Version None)
Quarter: 2007Q4

REPORT INFORMATION
  Report Type: 
  Country: None (occurrence: None)
  Receive Date: 20071114
  Receipt Date: 20071109
  Transmission Date: 20080405
  Serious: Yes (Hospitalization)
  Sender: FDA-Public Use
  Company Number: US-BOEHRINGER INGELHEIM PHARMACEUTICALS, INC.-2007-BP-24321BP

PATIENT
  Sex: Female

DRUGS (2)
  1. ZANTAC 150 [Suspect]
     Indication: DYSPEPSIA
     Route: 048
     Dates: start: 20071011, end: 20071025
  2. ZANTAC 150 [Suspect]

REACTIONS (5)
  - BACK PAIN [None]
  - CHILLS [None]
  - DYSPNOEA [None]
  - PALPITATIONS [None]
  - PERICARDITIS [None]
